FAERS Safety Report 5848273-2 (Version None)
Quarter: 2008Q3

REPORT INFORMATION
  Report Type: 
  Country: None (occurrence: None)
  Receive Date: 20080818
  Receipt Date: 20080813
  Transmission Date: 20090109
  Serious: Yes (Hospitalization, Other)
  Sender: FDA-Public Use
  Company Number: US-BRISTOL-MYERS SQUIBB COMPANY-13885124

PATIENT
  Age: 66 Year
  Sex: Male
  Weight: 54 kg

DRUGS (2)
  1. CISPLATIN [Suspect]
     Indication: PHARYNGEAL CANCER STAGE UNSPECIFIED
     Dosage: THERAPY START-17JUL07
     Dates: start: 20070807, end: 20070807
  2. RADIATION THERAPY [Suspect]
     Indication: PHARYNGEAL CANCER STAGE UNSPECIFIED
     Dosage: 1 DOSAGE FORM = 54GY;TOTAL DOSE 54GY;TYPE OF RADIATION ADMIINISTRATION=EXTERNAL BEAM, 3D.
     Dates: start: 20070820, end: 20070820

REACTIONS (9)
  - BLOOD CREATININE INCREASED [None]
  - DEHYDRATION [None]
  - DYSPHAGIA [None]
  - HYPOTENSION [None]
  - MUCOSAL INFLAMMATION [None]
  - NAUSEA [None]
  - NEUTROPHIL COUNT DECREASED [None]
  - WEIGHT DECREASED [None]
  - WHITE BLOOD CELL COUNT DECREASED [None]
